FAERS Safety Report 4660520-1 (Version None)
Quarter: 2005Q2

REPORT INFORMATION
  Report Type: 
  Country: None (occurrence: None)
  Receive Date: 20050511
  Receipt Date: 20050511
  Transmission Date: 20051028
  Serious: No
  Sender: FDA-Public Use
  Company Number: None

PATIENT

DRUGS (1)
  1. BREVITAL SODIUM [Suspect]
     Indication: ELECTROCONVULSIVE THERAPY
     Dosage: 500MG   INTRAVENOU
     Route: 042

REACTIONS (1)
  - DRUG EFFECT DECREASED [None]
